FAERS Safety Report 7590409 (Version 5)
Quarter: 2015Q4

REPORT INFORMATION
  Report Type: Spontaneous
  Country: US (occurrence: US)
  Receive Date: 20100917
  Receipt Date: 20151208
  Transmission Date: 20160305
  Serious: Yes (Hospitalization, Other)
  Sender: FDA-Public Use
  Company Number: US-BAYER-201033635NA

PATIENT
  Age: 28 Year
  Sex: Female
  Weight: 55 kg

DRUGS (4)
  1. OCELLA [Suspect]
     Active Substance: DROSPIRENONE\ETHINYL ESTRADIOL
     Indication: CONTRACEPTION
     Dates: start: 200401, end: 20081215
  2. YASMIN [Suspect]
     Active Substance: DROSPIRENONE\ETHINYL ESTRADIOL
     Indication: CONTRACEPTION
     Dates: start: 200401, end: 20081215
  3. FLONASE [Concomitant]
     Active Substance: FLUTICASONE PROPIONATE
  4. YAZ [Suspect]
     Active Substance: DROSPIRENONE\ETHINYL ESTRADIOL
     Indication: CONTRACEPTION
     Dates: start: 200401, end: 20081215

REACTIONS (4)
  - Anhedonia [None]
  - Pain [None]
  - Cerebrovascular accident [Unknown]
  - Embolism arterial [None]

NARRATIVE: CASE EVENT DATE: 20040223
